FAERS Safety Report 20171419 (Version 1)
Quarter: 2021Q4

REPORT INFORMATION
  Report Type: Spontaneous
  Country: TO (occurrence: None)
  Receive Date: 20211209
  Receipt Date: 20211209
  Transmission Date: 20220303
  Serious: No
  Sender: FDA-Public Use
  Company Number: None

PATIENT
  Age: 46 Year
  Sex: Male
  Weight: 115 kg

DRUGS (4)
  1. COTRIMOXAZOLE [Suspect]
     Active Substance: SULFAMETHOXAZOLE\TRIMETHOPRIM
     Indication: Infection
     Dosage: FREQUENCY : TWICE A DAY;?
     Route: 048
     Dates: start: 20211207, end: 20211210
  2. PENICILLIN [Concomitant]
     Active Substance: PENICILLIN
  3. ACETAMINOPHEN [Concomitant]
     Active Substance: ACETAMINOPHEN
  4. FLAGYL [Concomitant]
     Active Substance: METRONIDAZOLE\METRONIDAZOLE HYDROCHLORIDE

REACTIONS (2)
  - Pruritus genital [None]
  - Genital swelling [None]
